FAERS Safety Report 6337816-0 (Version None)
Quarter: 2009Q3

REPORT INFORMATION
  Report Type: 
  Country: None (occurrence: None)
  Receive Date: 20090902
  Receipt Date: 20090827
  Transmission Date: 20100115
  Serious: Yes (Other)
  Sender: FDA-Public Use
  Company Number: A0804760A

PATIENT
  Age: 43 Year
  Sex: Female

DRUGS (6)
  1. ADVAIR HFA [Suspect]
     Indication: ASTHMA
     Dosage: 1PUFF TWICE PER DAY
     Route: 055
  2. ALBUTEROL [Concomitant]
  3. TRAZODONE [Concomitant]
  4. NAPROXEN [Concomitant]
  5. AMBIEN [Concomitant]
  6. TRAMADOL HCL [Concomitant]

REACTIONS (5)
  - ASTHMA [None]
  - CHEST DISCOMFORT [None]
  - DIZZINESS [None]
  - DYSPNOEA [None]
  - FEELING ABNORMAL [None]
